FAERS Safety Report 11644788 (Version 2)
Quarter: 2015Q4

REPORT INFORMATION
  Report Type: Report from Study
  Country: JP (occurrence: JP)
  Receive Date: 20151020
  Receipt Date: 20151224
  Transmission Date: 20160304
  Serious: Yes (Death, Other)
  Sender: FDA-Public Use
  Company Number: JP-TEVA-601391ISR

PATIENT
  Age: 74 Year
  Sex: Male

DRUGS (12)
  1. LIPITOR [Concomitant]
     Active Substance: ATORVASTATIN CALCIUM
     Indication: HYPERLIPIDAEMIA
     Dosage: 5 MILLIGRAM DAILY;
     Route: 048
     Dates: start: 20140219, end: 20150420
  2. FILGRASTIM BS INJ. ^NK^ (FILGRASTIM (GENETICAL RECOMBINATION)) [Suspect]
     Active Substance: FILGRASTIM
     Indication: HAEMATOPOIETIC STEM CELL MOBILISATION
     Dosage: 150 MICROGRAM/BODY
     Route: 058
     Dates: start: 20141128, end: 20141130
  3. RITUXAN [Concomitant]
     Active Substance: RITUXIMAB
     Indication: BLOOD STEM CELL HARVEST
     Dosage: 600 MILLIGRAM DAILY;
     Route: 042
     Dates: start: 20141118, end: 20141118
  4. ETOPOSIDE. [Concomitant]
     Active Substance: ETOPOSIDE
     Indication: BLOOD STEM CELL HARVEST
     Dosage: 200 MILLIGRAM DAILY;
     Route: 042
     Dates: start: 20141119, end: 20141121
  5. CYTARABINE. [Concomitant]
     Active Substance: CYTARABINE
     Indication: BLOOD STEM CELL HARVEST
     Dosage: 2200 MILLIGRAM DAILY;
     Route: 042
     Dates: start: 20141120, end: 20141121
  6. CEFEPIME [Concomitant]
     Active Substance: CEFEPIME HYDROCHLORIDE
     Indication: PROPHYLAXIS
     Dosage: 4 GRAM DAILY;
     Route: 042
     Dates: start: 20141130, end: 20141208
  7. FILGRASTIM BS INJ. ^NK^ (FILGRASTIM (GENETICAL RECOMBINATION)) [Suspect]
     Active Substance: FILGRASTIM
     Dosage: 600 MICROGRAM/BODY
     Route: 058
     Dates: start: 20141201, end: 20141202
  8. FILGRASTIM BS INJ. ^NK^ (FILGRASTIM (GENETICAL RECOMBINATION)) [Suspect]
     Active Substance: FILGRASTIM
     Dosage: 300 MICROGRAM/BODY
     Route: 058
     Dates: start: 20141203, end: 20141205
  9. HEPARIN SODIUM. [Concomitant]
     Active Substance: HEPARIN SODIUM
     Indication: PROPHYLAXIS
     Dosage: 4000 UNITS/DAY
     Route: 042
     Dates: start: 20141203, end: 20141204
  10. GASTER [Concomitant]
     Active Substance: FAMOTIDINE
     Indication: GASTRIC ULCER
     Dosage: 40 MILLIGRAM DAILY;
     Route: 048
     Dates: start: 20140219, end: 20150420
  11. MICARDIS [Concomitant]
     Active Substance: TELMISARTAN
     Indication: HYPERTENSION
     Dosage: 20 MILLIGRAM DAILY;
     Route: 048
     Dates: start: 20140219, end: 20150420
  12. IFOMIDE [Concomitant]
     Active Substance: IFOSFAMIDE
     Indication: BLOOD STEM CELL HARVEST
     Dosage: 2000 MILLIGRAM DAILY;
     Route: 042
     Dates: start: 20141119, end: 20141121

REACTIONS (1)
  - Pulmonary artery thrombosis [Recovered/Resolved]

NARRATIVE: CASE EVENT DATE: 20141208
